FAERS Safety Report 13697968 (Version 1)
Quarter: 2017Q2

REPORT INFORMATION
  Report Type: Spontaneous
  Country: GB (occurrence: GB)
  Receive Date: 20170628
  Receipt Date: 20170628
  Transmission Date: 20170830
  Serious: Yes (Disabling)
  Sender: FDA-Public Use
  Company Number: GB-ASCEND THERAPEUTICS-2022602

PATIENT
  Age: 64 Year
  Sex: Female

DRUGS (2)
  1. ESTROGEL [Suspect]
     Active Substance: ESTRADIOL
     Indication: PRODUCT USED FOR UNKNOWN INDICATION
     Route: 061
     Dates: start: 20170516, end: 20170605
  2. ESTROGEL [Suspect]
     Active Substance: ESTRADIOL
     Route: 065

REACTIONS (4)
  - Peripheral swelling [Recovering/Resolving]
  - Memory impairment [Recovering/Resolving]
  - Disturbance in attention [Recovering/Resolving]
  - Product quality issue [None]
